FAERS Safety Report 19782223 (Version 1)
Quarter: 2021Q3

REPORT INFORMATION
  Report Type: Report from Study
  Country: CO (occurrence: CO)
  Receive Date: 20210902
  Receipt Date: 20210902
  Transmission Date: 20211014
  Serious: Yes (Hospitalization, Other)
  Sender: FDA-Public Use
  Company Number: CO-TAKEDA-CO202022444

PATIENT
  Age: 25 Year
  Sex: Male
  Weight: 65 kg

DRUGS (2)
  1. HUMAN IMMUNOGLOBULIN; HYALURONIDASE [Suspect]
     Active Substance: HUMAN IMMUNOGLOBULIN G\HYALURONIDASE RECOMBINANT HUMAN
     Dosage: 30 GRAM
     Route: 058
     Dates: start: 20190917
  2. HUMAN IMMUNOGLOBULIN; HYALURONIDASE [Suspect]
     Active Substance: HUMAN IMMUNOGLOBULIN G\HYALURONIDASE RECOMBINANT HUMAN
     Indication: PRIMARY IMMUNODEFICIENCY SYNDROME
     Dosage: UNK
     Route: 058

REACTIONS (13)
  - Fluorosis [Unknown]
  - Chronic sinusitis [Unknown]
  - Pneumonia [Unknown]
  - Bronchiectasis [Unknown]
  - Anaemia vitamin B12 deficiency [Unknown]
  - Dental caries [Unknown]
  - Chronic gastritis [Unknown]
  - Weight decreased [Unknown]
  - Intrinsic factor deficiency [Unknown]
  - Malaise [Unknown]
  - Pyrexia [Unknown]
  - Helicobacter infection [Unknown]
  - Headache [Unknown]

NARRATIVE: CASE EVENT DATE: 20200708
